FAERS Safety Report 7802349-9 (Version None)
Quarter: 2011Q4

REPORT INFORMATION
  Report Type: 
  Country: None (occurrence: None)
  Receive Date: 20111007
  Receipt Date: 20110929
  Transmission Date: 20120403
  Serious: Yes (Hospitalization)
  Sender: FDA-Public Use
  Company Number: AU-JNJFOC-20110810613

PATIENT
  Sex: Female

DRUGS (7)
  1. SIMPONI [Suspect]
     Indication: RHEUMATOID ARTHRITIS
     Route: 058
     Dates: start: 20101228
  2. ZOMEPIRAC SODIUM [Concomitant]
  3. METHOTREXATE [Concomitant]
  4. FOLIC ACID [Concomitant]
  5. AVAPRO [Concomitant]
  6. PANADOL OSTEO [Concomitant]
  7. ACETAMINOPHEN [Concomitant]

REACTIONS (1)
  - PNEUMONIA [None]
